FAERS Safety Report 20027164 (Version 1)
Quarter: 2021Q4

REPORT INFORMATION
  Report Type: Report from Study
  Country: US (occurrence: US)
  Receive Date: 20211103
  Receipt Date: 20211103
  Transmission Date: 20220303
  Serious: No
  Sender: FDA-Public Use
  Company Number: US-Ipsen Biopharmaceuticals, Inc.-2021-26654

PATIENT
  Sex: Female

DRUGS (1)
  1. SOMATULINE DEPOT [Suspect]
     Active Substance: LANREOTIDE ACETATE
     Indication: Product used for unknown indication
     Dosage: DOSE AND STRENGTH: 120MG
     Route: 058
     Dates: start: 201812

REACTIONS (3)
  - Nausea [Recovering/Resolving]
  - Abdominal distension [Recovering/Resolving]
  - Feeling abnormal [Recovering/Resolving]
